FAERS Safety Report 22182370 (Version 1)
Quarter: 2023Q2

REPORT INFORMATION
  Report Type: Spontaneous
  Country: CN (occurrence: None)
  Receive Date: 20230406
  Receipt Date: 20230406
  Transmission Date: 20230721
  Serious: Yes (Other)
  Sender: FDA-Public Use
  Company Number: CN-ROCHE-3322497

PATIENT
  Age: 53 Year
  Sex: Male
  Weight: 80 kg

DRUGS (11)
  1. AVASTIN [Suspect]
     Active Substance: BEVACIZUMAB
     Indication: Hepatic cancer
     Route: 041
     Dates: start: 20230303, end: 20230303
  2. AVASTIN [Suspect]
     Active Substance: BEVACIZUMAB
     Indication: Tumour thrombosis
  3. XELODA [Suspect]
     Active Substance: CAPECITABINE
     Indication: Hepatic cancer
     Route: 048
     Dates: start: 20230304, end: 20230305
  4. XELODA [Suspect]
     Active Substance: CAPECITABINE
     Indication: Tumour thrombosis
  5. SINTILIMAB [Suspect]
     Active Substance: SINTILIMAB
     Indication: Hepatic cancer
     Route: 041
     Dates: start: 20230303, end: 20230303
  6. SINTILIMAB [Suspect]
     Active Substance: SINTILIMAB
     Indication: Tumour thrombosis
  7. OXALIPLATIN [Suspect]
     Active Substance: OXALIPLATIN
     Indication: Hepatic cancer
     Route: 041
     Dates: start: 20230304, end: 20230304
  8. OXALIPLATIN [Suspect]
     Active Substance: OXALIPLATIN
     Indication: Tumour thrombosis
  9. SODIUM CHLORIDE [Concomitant]
     Active Substance: SODIUM CHLORIDE
     Route: 041
     Dates: start: 20230303, end: 20230303
  10. SODIUM CHLORIDE [Concomitant]
     Active Substance: SODIUM CHLORIDE
     Route: 041
     Dates: start: 20230303, end: 20230303
  11. DEXTROSE [Concomitant]
     Active Substance: DEXTROSE\DEXTROSE MONOHYDRATE
     Route: 041
     Dates: start: 20230304, end: 20230304

REACTIONS (3)
  - Myelosuppression [Recovering/Resolving]
  - White blood cell count decreased [Recovering/Resolving]
  - Neutrophil count decreased [Recovering/Resolving]

NARRATIVE: CASE EVENT DATE: 20230306
